FAERS Safety Report 4370563-3 (Version None)
Quarter: 2004Q2

REPORT INFORMATION
  Report Type: 
  Country: None (occurrence: None)
  Receive Date: 20040603
  Receipt Date: 20020516
  Transmission Date: 20050107
  Serious: Yes (Death, Other)
  Sender: FDA-Public Use
  Company Number: US-MERCK-0205USA01996

PATIENT
  Age: 53 Year
  Sex: Male
  Weight: 95 kg

DRUGS (2)
  1. VIOXX [Suspect]
     Indication: ARTHRITIS
     Route: 048
     Dates: start: 19990101, end: 20000520
  2. VIOXX [Suspect]
     Route: 048
     Dates: start: 19990101, end: 20000520

REACTIONS (2)
  - GALLBLADDER DISORDER [None]
  - HYPERTENSION [None]
